FAERS Safety Report 8762275 (Version 4)
Quarter: 2014Q3

REPORT INFORMATION
  Report Type: Spontaneous
  Country: US (occurrence: US)
  Receive Date: 20120830
  Receipt Date: 20140824
  Transmission Date: 20150326
  Serious: Yes (Hospitalization, Disabling, Other)
  Sender: FDA-Public Use
  Company Number: US-009507513-2011SP016567

PATIENT
  Sex: Female
  Weight: 68.4 kg

DRUGS (5)
  1. SYNTHROID [Concomitant]
     Active Substance: LEVOTHYROXINE SODIUM
     Indication: HYPOTHYROIDISM
     Dates: start: 1998
  2. NUVARING [Suspect]
     Active Substance: ETHINYL ESTRADIOL\ETONOGESTREL
     Indication: CONTRACEPTION
     Route: 067
     Dates: start: 200105
  3. VITAMINS (UNSPECIFIED) [Concomitant]
     Active Substance: VITAMINS
     Dosage: UNK UNK, QD
  4. NUVARING [Suspect]
     Active Substance: ETHINYL ESTRADIOL\ETONOGESTREL
     Indication: DYSFUNCTIONAL UTERINE BLEEDING
     Dosage: UNK
     Dates: start: 200611, end: 200904
  5. NUVARING [Suspect]
     Active Substance: ETHINYL ESTRADIOL\ETONOGESTREL
     Indication: HORMONE LEVEL ABNORMAL

REACTIONS (34)
  - Carotid artery dissection [Unknown]
  - Menorrhagia [Unknown]
  - Migraine [Unknown]
  - Craniectomy [Unknown]
  - Brain lobectomy [Unknown]
  - Upper-airway cough syndrome [Unknown]
  - Dysfunctional uterine bleeding [Unknown]
  - Cerebral artery thrombosis [Unknown]
  - Hydronephrosis [Unknown]
  - Calculus ureteric [Unknown]
  - Oral candidiasis [Unknown]
  - Tenderness [Unknown]
  - Obesity [Unknown]
  - Female sterilisation [Unknown]
  - Lithotripsy [Recovered/Resolved]
  - Sinus bradycardia [Unknown]
  - Cerebral infarction [Unknown]
  - Cognitive disorder [Not Recovered/Not Resolved]
  - Breast discharge [Unknown]
  - Anxiety [Not Recovered/Not Resolved]
  - Haemorrhagic stroke [Unknown]
  - Hypertonic bladder [Unknown]
  - Urinary tract infection [Not Recovered/Not Resolved]
  - Ischaemic stroke [Unknown]
  - Quality of life decreased [Unknown]
  - Renal cyst [Unknown]
  - Depression [Not Recovered/Not Resolved]
  - Endometrial ablation [Unknown]
  - Insomnia [Unknown]
  - Stress [Unknown]
  - Headache [Unknown]
  - Breast mass [Unknown]
  - Cranioplasty [Unknown]
  - Hemiparesis [Not Recovered/Not Resolved]

NARRATIVE: CASE EVENT DATE: 2001
